FAERS Safety Report 17852358 (Version 1)
Quarter: 2020Q2

REPORT INFORMATION
  Report Type: Spontaneous
  Country: FR (occurrence: FR)
  Receive Date: 20200602
  Receipt Date: 20200602
  Transmission Date: 20200714
  Serious: Yes (Other)
  Sender: FDA-Public Use
  Company Number: FR-PFIZER INC-2020213664

PATIENT
  Age: 798 Month
  Sex: Female

DRUGS (2)
  1. IBRANCE [Suspect]
     Active Substance: PALBOCICLIB
     Indication: BREAST CANCER METASTATIC
     Dosage: UNK
     Route: 048
  2. FASLODEX [Suspect]
     Active Substance: FULVESTRANT
     Indication: BREAST CANCER METASTATIC
     Dosage: 250 MG
     Route: 030
     Dates: start: 201811

REACTIONS (4)
  - Back pain [Unknown]
  - Injection site induration [Unknown]
  - Injection site cyst [Unknown]
  - Arthralgia [Unknown]

NARRATIVE: CASE EVENT DATE: 202003
